FAERS Safety Report 9749921 (Version 2)
Quarter: 2013Q4

REPORT INFORMATION
  Report Type: Spontaneous
  Country: US (occurrence: US)
  Receive Date: 20131212
  Receipt Date: 20131212
  Transmission Date: 20140711
  Serious: Yes (Other)
  Sender: FDA-Public Use
  Company Number: US-ABBVIE-10P-163-0657835-00

PATIENT
  Sex: Female

DRUGS (3)
  1. LUPRON [Suspect]
     Indication: UTERINE LEIOMYOMA
  2. LUPRON [Suspect]
  3. PROGESTIN [Concomitant]
     Indication: PRODUCT USED FOR UNKNOWN INDICATION

REACTIONS (6)
  - Vaginal haemorrhage [Unknown]
  - Uterine leiomyoma [Unknown]
  - Hot flush [Unknown]
  - Arthralgia [Unknown]
  - Hot flush [Unknown]
  - Arthralgia [Unknown]
